FAERS Safety Report 6124090-3 (Version None)
Quarter: 2009Q1

REPORT INFORMATION
  Report Type: 
  Country: None (occurrence: None)
  Receive Date: 20090318
  Receipt Date: 20090318
  Transmission Date: 20090719
  Serious: Yes (Other)
  Sender: FDA-Public Use
  Company Number: None

PATIENT
  Age: 69 Year
  Sex: Male
  Weight: 81.6475 kg

DRUGS (2)
  1. ARICEPT [Suspect]
     Indication: DEMENTIA
     Dosage: 20MG BEDTIME PO, 1 WEEK OF 20MG DOSE
     Route: 048
     Dates: start: 20090101, end: 20090107
  2. ARICEPT [Suspect]
     Indication: MEMORY IMPAIRMENT
     Dosage: 20MG BEDTIME PO, 1 WEEK OF 20MG DOSE
     Route: 048
     Dates: start: 20090101, end: 20090107

REACTIONS (8)
  - ACTIVITIES OF DAILY LIVING IMPAIRED [None]
  - DIZZINESS [None]
  - HEADACHE [None]
  - HYPOTENSION [None]
  - MASTOIDITIS [None]
  - MEDICATION ERROR [None]
  - OVERDOSE [None]
  - SINUSITIS [None]
